FAERS Safety Report 20092922 (Version 1)
Quarter: 2021Q4

REPORT INFORMATION
  Report Type: Report from Study
  Country: AR (occurrence: AR)
  Receive Date: 20211120
  Receipt Date: 20211120
  Transmission Date: 20220303
  Serious: Yes (Other)
  Sender: FDA-Public Use
  Company Number: AR-NOVARTISPH-NVSC2021AR261402

PATIENT
  Sex: Female

DRUGS (1)
  1. DIOVAN [Suspect]
     Active Substance: VALSARTAN
     Indication: Mean arterial pressure
     Dosage: 1 DF DAILY ON THE MORNING,10 YEAR AGO MORE OR LESS
     Route: 065

REACTIONS (5)
  - Asphyxia [Unknown]
  - Diabetes mellitus [Unknown]
  - Amnesia [Unknown]
  - Blood pressure abnormal [Unknown]
  - Red blood cell count decreased [Unknown]
